FAERS Safety Report 24223330 (Version 1)
Quarter: 2024Q3

REPORT INFORMATION
  Report Type: Spontaneous
  Country: US (occurrence: US)
  Receive Date: 20240819
  Receipt Date: 20240819
  Transmission Date: 20241017
  Serious: No
  Sender: ANI
  Company Number: US-ANIPHARMA-2024-US-017924

PATIENT
  Age: 58 Year
  Sex: Female
  Weight: 72.6 kg

DRUGS (9)
  1. ANASTROZOLE [Suspect]
     Active Substance: ANASTROZOLE
     Indication: Product used for unknown indication
     Dosage: 1 MG DAILY
  2. AVASTIN [Suspect]
     Active Substance: BEVACIZUMAB
     Dosage: UNK DOSE EVERY 3 WEEKS
  3. CARVEDILOL [Concomitant]
     Active Substance: CARVEDILOL
  4. VALSARTAN [Suspect]
     Active Substance: VALSARTAN
     Dosage: 120 / THEN 320 MG DAILY
  5. ZYRTEC [Concomitant]
     Active Substance: CETIRIZINE HYDROCHLORIDE
  6. VITAMINS [Concomitant]
     Active Substance: VITAMINS
  7. CRESTOR [Concomitant]
     Active Substance: ROSUVASTATIN CALCIUM
  8. LISINOPRIL [Suspect]
     Active Substance: LISINOPRIL
     Dosage: 40 MG DAILY
  9. LYNPARZA [Suspect]
     Active Substance: OLAPARIB
     Dosage: 300 MILLIGRAMS TWO TIMES A DAY
     Route: 048
     Dates: start: 20240213

REACTIONS (3)
  - Blood pressure increased [Recovering/Resolving]
  - Headache [Not Recovered/Not Resolved]
  - Paranasal sinus discomfort [Not Recovered/Not Resolved]

NARRATIVE: CASE EVENT DATE: 20240227
